FAERS Safety Report 25875026 (Version 4)
Quarter: 2025Q4

REPORT INFORMATION
  Report Type: Report from Study
  Country: CA (occurrence: None)
  Receive Date: 20251003
  Receipt Date: 20251121
  Transmission Date: 20260118
  Serious: Yes (Other)
  Sender: UCB
  Company Number: CA-UCBSA-2025061169

PATIENT

DRUGS (4)
  1. CERTOLIZUMAB PEGOL [Suspect]
     Active Substance: CERTOLIZUMAB PEGOL
     Indication: Ankylosing spondylitis
     Dosage: 200 MILLIGRAM, EV 2 WEEKS(QOW)
  2. MELOXICAM [Concomitant]
     Active Substance: MELOXICAM
     Indication: Product used for unknown indication
     Dosage: 7.5, 2X/DAY (BID)
  3. LAMICTAL [Concomitant]
     Active Substance: LAMOTRIGINE
     Indication: Product used for unknown indication
     Dosage: 175 MILLIGRAM
  4. SEQUELAN [Concomitant]
     Indication: Product used for unknown indication

REACTIONS (7)
  - Ankylosing spondylitis [Recovering/Resolving]
  - Mental disorder [Unknown]
  - Fatigue [Recovering/Resolving]
  - Stress [Unknown]
  - Infection [Unknown]
  - Iritis [Not Recovered/Not Resolved]
  - Inappropriate schedule of product administration [Unknown]
